FAERS Safety Report 7259777-2 (Version None)
Quarter: 2011Q1

REPORT INFORMATION
  Report Type: 
  Country: None (occurrence: None)
  Receive Date: 20110130
  Receipt Date: 20101222
  Transmission Date: 20110831
  Serious: No
  Sender: FDA-Public Use
  Company Number: US-ABBOTT-10P-163-0663148-00

PATIENT
  Sex: Female
  Weight: 68.1 kg

DRUGS (9)
  1. METHOTREXATE [Concomitant]
     Indication: PRODUCT USED FOR UNKNOWN INDICATION
     Dates: end: 20100101
  2. METHOTREXATE [Concomitant]
     Dates: start: 20100101
  3. PREMARIN [Concomitant]
     Indication: BLOOD OESTROGEN
  4. LIPITOR [Concomitant]
     Indication: PRODUCT USED FOR UNKNOWN INDICATION
  5. HUMIRA [Suspect]
     Indication: PSORIATIC ARTHROPATHY
  6. FOLIC ACID [Concomitant]
     Indication: PRODUCT USED FOR UNKNOWN INDICATION
  7. FISH OIL [Concomitant]
     Indication: SUPPLEMENTATION THERAPY
  8. HUMIRA [Suspect]
     Indication: RHEUMATOID ARTHRITIS
     Dates: start: 20070101
  9. HUMIRA [Suspect]
     Indication: PSORIASIS

REACTIONS (6)
  - PAIN IN EXTREMITY [None]
  - PSORIASIS [None]
  - SKIN FISSURES [None]
  - HAEMORRHAGE [None]
  - SCLERODERMA [None]
  - NASOPHARYNGITIS [None]
